FAERS Safety Report 21797625 (Version 2)
Quarter: 2023Q1

REPORT INFORMATION
  Report Type: Spontaneous
  Country: JP (occurrence: JP)
  Receive Date: 20221230
  Receipt Date: 20230203
  Transmission Date: 20230418
  Serious: Yes (Other)
  Sender: FDA-Public Use
  Company Number: JP-Teva Takeda Yakuhin-2022-JP-004458J

PATIENT
  Age: 78 Year
  Sex: Female

DRUGS (2)
  1. ESTAZOLAM [Suspect]
     Active Substance: ESTAZOLAM
     Indication: Product used for unknown indication
     Route: 048
  2. ESTAZOLAM [Suspect]
     Active Substance: ESTAZOLAM
     Route: 048
     Dates: start: 20221225, end: 20221225

REACTIONS (3)
  - Depressed level of consciousness [Recovered/Resolved]
  - Somnolence [Recovered/Resolved]
  - Overdose [Unknown]

NARRATIVE: CASE EVENT DATE: 20221225
